FAERS Safety Report 6544309-4 (Version None)
Quarter: 2010Q1

REPORT INFORMATION
  Report Type: 
  Country: None (occurrence: None)
  Receive Date: 20100120
  Receipt Date: 20100120
  Transmission Date: 20100710
  Serious: Yes (Other)
  Sender: FDA-Public Use
  Company Number: None

PATIENT
  Age: 48 Year
  Sex: Female
  Weight: 62.1428 kg

DRUGS (2)
  1. BENADRYL [Suspect]
     Indication: HEADACHE
     Dosage: 25MG ONCE HS PO
     Route: 048
     Dates: start: 20091201, end: 20100115
  2. BENADRYL [Suspect]
     Indication: INSOMNIA
     Dosage: 25MG ONCE HS PO
     Route: 048
     Dates: start: 20091201, end: 20100115

REACTIONS (4)
  - DYSPNOEA [None]
  - EYE PAIN [None]
  - HEADACHE [None]
  - MUSCULOSKELETAL STIFFNESS [None]
